FAERS Safety Report 5362573-4 (Version None)
Quarter: 2007Q2

REPORT INFORMATION
  Report Type: 
  Country: None (occurrence: None)
  Receive Date: 20070619
  Receipt Date: 20070612
  Transmission Date: 20071010
  Serious: Yes (Hospitalization)
  Sender: FDA-Public Use
  Company Number: JP-BOEHRINGER INGELHEIM PHARMACEUTICALS, INC.-2006-BP-12477NB

PATIENT
  Sex: Female
  Weight: 38 kg

DRUGS (4)
  1. BI-SIFROL TABLETS [Suspect]
     Indication: PARKINSON'S DISEASE
     Route: 048
     Dates: start: 20040211, end: 20041015
  2. ARICEPT [Concomitant]
     Indication: DEMENTIA ALZHEIMER'S TYPE
     Route: 048
     Dates: start: 20040410, end: 20040827
  3. MICARDIS [Concomitant]
     Indication: HYPERTENSION
     Route: 048
     Dates: start: 20040510, end: 20040827
  4. CIBENOL [Concomitant]
     Indication: ARRHYTHMIA
     Route: 048
     Dates: start: 20040517, end: 20040827

REACTIONS (3)
  - CEREBRAL HAEMATOMA [None]
  - DRY MOUTH [None]
  - HALLUCINATION [None]
